FAERS Safety Report 16874715 (Version 1)
Quarter: 2019Q4

REPORT INFORMATION
  Report Type: Spontaneous
  Country: US (occurrence: US)
  Receive Date: 20191001
  Receipt Date: 20191001
  Transmission Date: 20200122
  Serious: No
  Sender: FDA-Public Use
  Company Number: US-GALDERMA-US19010297

PATIENT
  Sex: Female

DRUGS (1)
  1. MIRVASO [Suspect]
     Active Substance: BRIMONIDINE TARTRATE
     Indication: ERYTHEMA
     Dosage: 0.33%
     Route: 061

REACTIONS (6)
  - Pain of skin [Unknown]
  - Hypersensitivity [Unknown]
  - Lip pain [Unknown]
  - Rash pruritic [Unknown]
  - Perioral dermatitis [Unknown]
  - Rash papular [Unknown]
